FAERS Safety Report 4422570-X (Version None)
Quarter: 2004Q3

REPORT INFORMATION
  Report Type: 
  Country: None (occurrence: None)
  Receive Date: 20040810
  Receipt Date: 20040720
  Transmission Date: 20050211
  Serious: Yes (Life-Threatening, Hospitalization)
  Sender: FDA-Public Use
  Company Number: PHEH2004US07978

PATIENT
  Age: 59 Year
  Sex: Female

DRUGS (4)
  1. ZELNORM [Suspect]
     Indication: IRRITABLE BOWEL SYNDROME
     Dosage: 6 MG, BID
     Route: 048
     Dates: start: 20031027, end: 20040712
  2. MIRALAX [Concomitant]
     Dates: start: 20031001
  3. CITRUCEL [Concomitant]
     Indication: CONSTIPATION
     Dates: start: 20040712
  4. AVANDAMET [Concomitant]
     Dosage: 4MG/500MG 2 TABLETS BID

REACTIONS (11)
  - ABDOMINAL DISTENSION [None]
  - ABDOMINAL PAIN [None]
  - ARTERIAL DISORDER [None]
  - COLECTOMY [None]
  - COLOSTOMY [None]
  - CONSTIPATION [None]
  - GASTROINTESTINAL MOTILITY DISORDER [None]
  - HYPERNATRAEMIA [None]
  - INTESTINAL OBSTRUCTION [None]
  - LAPAROTOMY [None]
  - TOXIC DILATATION OF COLON [None]
